FAERS Safety Report 7728524-X (Version None)
Quarter: 2011Q3

REPORT INFORMATION
  Report Type: 
  Country: None (occurrence: None)
  Receive Date: 20110906
  Receipt Date: 20110824
  Transmission Date: 20111222
  Serious: No
  Sender: FDA-Public Use
  Company Number: US-BIOGENIDEC-2011BI010018

PATIENT
  Sex: Female

DRUGS (1)
  1. TYSABRI [Suspect]
     Indication: MULTIPLE SCLEROSIS
     Route: 042
     Dates: start: 20110216

REACTIONS (6)
  - VISUAL IMPAIRMENT [None]
  - PAIN [None]
  - ASTHENIA [None]
  - DENTAL CARIES [None]
  - GLAUCOMA [None]
  - SLEEP APNOEA SYNDROME [None]
